FAERS Safety Report 7037726-X (Version None)
Quarter: 2010Q4

REPORT INFORMATION
  Report Type: 
  Country: None (occurrence: None)
  Receive Date: 20101011
  Receipt Date: 20101001
  Transmission Date: 20110411
  Serious: Yes (Death)
  Sender: FDA-Public Use
  Company Number: GXKR2010QA11154

PATIENT
  Age: 42 Year
  Sex: Male

DRUGS (2)
  1. RIFAMPICIN (NGX) [Suspect]
     Indication: LATENT TUBERCULOSIS
     Dosage: 450 MG/DAY
     Route: 065
     Dates: start: 20090211
  2. ISONIAZID [Suspect]
     Indication: LATENT TUBERCULOSIS
     Dosage: 150 MG/DAY
     Route: 065
     Dates: start: 20090211

REACTIONS (15)
  - ACUTE HEPATIC FAILURE [None]
  - ALTERED STATE OF CONSCIOUSNESS [None]
  - ANXIETY [None]
  - ASTERIXIS [None]
  - COMA [None]
  - EPIGASTRIC DISCOMFORT [None]
  - HAEMORRHAGE [None]
  - HEPATIC ENZYME INCREASED [None]
  - HEPATITIS [None]
  - HYPERVENTILATION [None]
  - JAUNDICE [None]
  - MALAISE [None]
  - NAUSEA [None]
  - PYREXIA [None]
  - VOMITING [None]
